FAERS Safety Report 16936546 (Version 1)
Quarter: 2019Q4

REPORT INFORMATION
  Report Type: Spontaneous
  Country: US (occurrence: US)
  Receive Date: 20191018
  Receipt Date: 20191018
  Transmission Date: 20200122
  Serious: No
  Sender: FDA-Public Use
  Company Number: US-BRISTOL-MYERS SQUIBB COMPANY-BMS-2019-096236

PATIENT
  Sex: Male
  Weight: 63.5 kg

DRUGS (4)
  1. ELIQUIS [Suspect]
     Active Substance: APIXABAN
     Indication: CEREBROVASCULAR ACCIDENT PROPHYLAXIS
     Dosage: 2.5 MILLIGRAM
     Route: 048
     Dates: start: 2017
  2. REVATIO [Suspect]
     Active Substance: SILDENAFIL CITRATE
     Indication: CARDIAC FAILURE
     Dosage: 20 MILLIGRAM, TID
     Route: 048
     Dates: start: 2014
  3. REVATIO [Suspect]
     Active Substance: SILDENAFIL CITRATE
     Indication: SCLERODERMA
     Route: 065
  4. REVATIO [Suspect]
     Active Substance: SILDENAFIL CITRATE
     Indication: CREST SYNDROME
     Route: 065

REACTIONS (1)
  - Prescribed underdose [Unknown]
